FAERS Safety Report 9874417 (Version 4)
Quarter: 2014Q1

REPORT INFORMATION
  Report Type: Spontaneous
  Country: IL (occurrence: IL)
  Receive Date: 20140206
  Receipt Date: 20140228
  Transmission Date: 20141002
  Serious: Yes (Hospitalization, Other)
  Sender: FDA-Public Use
  Company Number: IL-009507513-1306ISR014062

PATIENT
  Age: 51 Year
  Sex: Male

DRUGS (4)
  1. VICTRELIS [Suspect]
     Indication: HEPATITIS C
     Dosage: UNK, TID
     Route: 048
     Dates: start: 20130425
  2. PEGASYS [Suspect]
     Dosage: UNK
  3. COPEGUS [Suspect]
     Dosage: UNK
     Route: 048
  4. ANTIVIRAL (UNSPECIFIED) [Concomitant]
     Indication: HIV INFECTION

REACTIONS (36)
  - Cerebrovascular accident [Unknown]
  - Nervousness [Recovered/Resolved]
  - Suicidal ideation [Recovered/Resolved]
  - Hypotension [Unknown]
  - Paraesthesia [Unknown]
  - Epistaxis [Unknown]
  - Malaise [Unknown]
  - Dyspnoea [Unknown]
  - Headache [Unknown]
  - Weight decreased [Not Recovered/Not Resolved]
  - Fatigue [Unknown]
  - Vomiting [Unknown]
  - Dizziness [Unknown]
  - Nausea [Not Recovered/Not Resolved]
  - Vomiting [Unknown]
  - Asthenia [Unknown]
  - Decreased appetite [Unknown]
  - Insomnia [Unknown]
  - Diarrhoea [Unknown]
  - Nausea [Recovered/Resolved]
  - Diarrhoea [Recovered/Resolved]
  - Blood sodium decreased [Unknown]
  - Blood urea decreased [Unknown]
  - Mean cell haemoglobin decreased [Unknown]
  - Lymphocyte percentage decreased [Unknown]
  - Haematocrit decreased [Unknown]
  - Neutrophil percentage increased [Unknown]
  - Pneumonia [Unknown]
  - Lymphocyte count decreased [Unknown]
  - White blood cell count decreased [Unknown]
  - Pyrexia [Unknown]
  - Chills [Unknown]
  - Haemoglobin decreased [Unknown]
  - Neutrophil count decreased [Unknown]
  - Red blood cell count decreased [Unknown]
  - Drug dose omission [Unknown]
